FAERS Safety Report 7896484-7 (Version None)
Quarter: 2011Q4

REPORT INFORMATION
  Report Type: 
  Country: None (occurrence: None)
  Receive Date: 20111106
  Receipt Date: 20110909
  Transmission Date: 20120403
  Serious: No
  Sender: FDA-Public Use
  Company Number: US-AMGEN-USASP2011046416

PATIENT
  Sex: Male

DRUGS (2)
  1. ENBREL [Suspect]
     Dosage: 25 MG, 2 TIMES/WK
     Route: 063
     Dates: start: 20040508
  2. ENBREL [Suspect]
     Dosage: 25 UNK, 2 TIMES/WK
     Route: 064
     Dates: start: 20000701

REACTIONS (1)
  - BREAST FEEDING [None]
